FAERS Safety Report 23463419 (Version 1)
Quarter: 2024Q1

REPORT INFORMATION
  Report Type: Report from Study
  Country: CA (occurrence: CA)
  Receive Date: 20240131
  Receipt Date: 20240131
  Transmission Date: 20240409
  Serious: Yes (Other)
  Sender: FDA-Public Use
  Company Number: CA-SANDOZ-SDZ2024CA008790

PATIENT
  Sex: Male

DRUGS (1)
  1. PIRFENIDONE [Suspect]
     Active Substance: PIRFENIDONE
     Indication: Product used for unknown indication
     Dosage: UNK
     Route: 065

REACTIONS (6)
  - Idiopathic pulmonary fibrosis [Unknown]
  - Bronchiectasis [Unknown]
  - Emphysema [Unknown]
  - Pleural disorder [Unknown]
  - Chronic obstructive pulmonary disease [Unknown]
  - Bronchial wall thickening [Unknown]
